FAERS Safety Report 10771384 (Version 4)
Quarter: 2015Q2

REPORT INFORMATION
  Report Type: Spontaneous
  Country: IE (occurrence: IE)
  Receive Date: 20150206
  Receipt Date: 20150507
  Transmission Date: 20150821
  Serious: Yes (Other)
  Sender: FDA-Public Use
  Company Number: IE-TEVA-538669ISR

PATIENT
  Sex: Male

DRUGS (4)
  1. ATORVASTATIN TEVA [Suspect]
     Active Substance: ATORVASTATIN
     Indication: CARDIAC DISORDER
     Dosage: 10 MILLIGRAM DAILY;
     Route: 048
     Dates: start: 20141229, end: 20150101
  2. TENORMIN 25MG FILM-COATED TABLETS [Concomitant]
     Dosage: 25 MILLIGRAM DAILY; 25 MG
     Dates: start: 2000
  3. CLOPIXOL SOLUTION FOR INJECTION 200 MG/ML [Concomitant]
     Dosage: 1/2 AMP 100MGS
     Dates: start: 2000
  4. NUPRIN [Concomitant]
     Active Substance: IBUPROFEN
     Dosage: 150 MILLIGRAM DAILY; 75 MG,TABLETS GASTRO-RESISTANT
     Dates: start: 2000

REACTIONS (12)
  - Headache [Recovered/Resolved]
  - Malaise [Unknown]
  - Vision blurred [Recovered/Resolved]
  - Product substitution issue [Unknown]
  - Hypersensitivity [Recovered/Resolved]
  - Rash pruritic [Recovered/Resolved]
  - Eye pruritus [Recovered/Resolved]
  - Eye infection [Unknown]
  - Rash [Recovered/Resolved]
  - Eye swelling [Recovered/Resolved]
  - Nausea [Unknown]
  - Swelling face [Recovered/Resolved]

NARRATIVE: CASE EVENT DATE: 20141229
